FAERS Safety Report 5197297-X (Version None)
Quarter: 2006Q4

REPORT INFORMATION
  Report Type: 
  Country: None (occurrence: None)
  Receive Date: 20061228
  Receipt Date: 20061220
  Transmission Date: 20070319
  Serious: Yes (Other)
  Sender: FDA-Public Use
  Company Number: 234129

PATIENT
  Age: 35 Year
  Sex: Male

DRUGS (4)
  1. RAPTIVA [Suspect]
     Indication: PSORIASIS
     Dosage: 0.75 ML
     Dates: start: 20051116
  2. CITALOPRAM HYDROBROMIDE [Concomitant]
  3. DOLIPRANE (ACETAMINOPHEN) [Concomitant]
  4. TEGRETOL [Concomitant]

REACTIONS (6)
  - ACCIDENT AT HOME [None]
  - ASTHENIA [None]
  - BURNS SECOND DEGREE [None]
  - DRUG INTOLERANCE [None]
  - EPILEPSY [None]
  - FALL [None]
